FAERS Safety Report 9323694 (Version 3)
Quarter: 2013Q3

REPORT INFORMATION
  Report Type: Spontaneous
  Country: US (occurrence: US)
  Receive Date: 20130603
  Receipt Date: 20130725
  Transmission Date: 20140515
  Serious: No
  Sender: FDA-Public Use
  Company Number: US-009507513-1305USA010567

PATIENT
  Age: 27 Year
  Sex: Female
  Weight: 124.72 kg

DRUGS (3)
  1. IMPLANON [Suspect]
     Indication: CONTRACEPTION
     Dosage: 1 DF, UNK
     Route: 059
     Dates: start: 20121113, end: 20130606
  2. NORVASC [Concomitant]
  3. ZOLOFT [Concomitant]

REACTIONS (7)
  - Device dislocation [Recovered/Resolved]
  - Menstruation irregular [Not Recovered/Not Resolved]
  - Medical device complication [Not Recovered/Not Resolved]
  - Device difficult to use [Not Recovered/Not Resolved]
  - Dysfunctional uterine bleeding [Recovered/Resolved]
  - Device deployment issue [Recovered/Resolved]
  - General anaesthesia [Recovered/Resolved]
